FAERS Safety Report 7278580-0 (Version None)
Quarter: 2011Q1

REPORT INFORMATION
  Report Type: 
  Country: None (occurrence: None)
  Receive Date: 20110207
  Receipt Date: 20110131
  Transmission Date: 20110831
  Serious: Yes (Death, Other)
  Sender: FDA-Public Use
  Company Number: CHPA2011US01795

PATIENT
  Age: 30 Year
  Sex: Male

DRUGS (5)
  1. ETHANOL [Suspect]
  2. IBUPROFEN [Suspect]
  3. COCAINE [Suspect]
  4. DRUG THERAPY NOS [Suspect]
  5. HEROIN [Suspect]

REACTIONS (2)
  - INTENTIONAL DRUG MISUSE [None]
  - CARDIO-RESPIRATORY ARREST [None]
